FAERS Safety Report 6975104-X (Version None)
Quarter: 2010Q3

REPORT INFORMATION
  Report Type: 
  Country: None (occurrence: None)
  Receive Date: 20100910
  Receipt Date: 20090209
  Transmission Date: 20110219
  Serious: No
  Sender: FDA-Public Use
  Company Number: US-WYE-H08135209

PATIENT
  Sex: Female
  Weight: 74.91 kg

DRUGS (6)
  1. PRISTIQ [Suspect]
     Indication: DEPRESSION
     Route: 048
     Dates: start: 20080101, end: 20090101
  2. PRISTIQ [Suspect]
     Route: 048
     Dates: start: 20090101
  3. TOPAMAX [Concomitant]
  4. FOSAMAX [Concomitant]
  5. SYNTHROID [Concomitant]
  6. XANAX [Concomitant]

REACTIONS (3)
  - DIZZINESS [None]
  - DRUG INEFFECTIVE [None]
  - HEADACHE [None]
